FAERS Safety Report 8603929-3 (Version None)
Quarter: 2012Q3

REPORT INFORMATION
  Report Type: 
  Country: None (occurrence: None)
  Receive Date: 20120820
  Receipt Date: 20120809
  Transmission Date: 20120928
  Serious: Yes (Life-Threatening, Hospitalization)
  Sender: FDA-Public Use
  Company Number: JP-GE HEALTHCARE MEDICAL DIAGNOSTICS-OMPQ-NO-1207S-0814

PATIENT
  Sex: Female

DRUGS (1)
  1. OMNIPAQUE 140 [Suspect]
     Indication: ABDOMINAL PAIN LOWER
     Route: 042
     Dates: start: 20120713, end: 20120713

REACTIONS (8)
  - BLOOD PRESSURE DECREASED [None]
  - MALAISE [None]
  - URTICARIA [None]
  - DEPRESSED LEVEL OF CONSCIOUSNESS [None]
  - UNRESPONSIVE TO STIMULI [None]
  - BLOOD PRESSURE IMMEASURABLE [None]
  - ANAPHYLACTIC SHOCK [None]
  - FEELING ABNORMAL [None]
